FAERS Safety Report 9325751 (Version 1)
Quarter: 2013Q2

REPORT INFORMATION
  Report Type: Spontaneous
  Country: CO (occurrence: CO)
  Receive Date: 20130604
  Receipt Date: 20130604
  Transmission Date: 20140414
  Serious: Yes (Other)
  Sender: FDA-Public Use
  Company Number: CO-JNJFOC-20130519401

PATIENT
  Age: 44 Year
  Sex: Female
  Weight: 45 kg

DRUGS (4)
  1. SIMPONI [Suspect]
     Indication: ANKYLOSING SPONDYLITIS
     Route: 058
     Dates: start: 201208
  2. ACETAMINOPHEN [Concomitant]
     Indication: PAIN MANAGEMENT
     Dosage: USED AS NEEDED
     Route: 065
     Dates: start: 201212
  3. PREGABALIN [Concomitant]
     Route: 065
  4. PREGABALIN [Concomitant]
     Route: 065

REACTIONS (7)
  - Chest pain [Recovered/Resolved]
  - Hypertension [Not Recovered/Not Resolved]
  - Tachycardia [Not Recovered/Not Resolved]
  - Syncope [Not Recovered/Not Resolved]
  - Malaise [Not Recovered/Not Resolved]
  - Hyperhidrosis [Not Recovered/Not Resolved]
  - Chills [Not Recovered/Not Resolved]
